FAERS Safety Report 19141018 (Version 3)
Quarter: 2021Q2

REPORT INFORMATION
  Report Type: Report from Study
  Country: DE (occurrence: DE)
  Receive Date: 20210415
  Receipt Date: 20210615
  Transmission Date: 20210717
  Serious: Yes (Hospitalization)
  Sender: FDA-Public Use
  Company Number: DE-BAYER-2021-123129

PATIENT
  Age: 79 Year
  Sex: Female

DRUGS (11)
  1. LEVOTHYROXINE. [Concomitant]
     Active Substance: LEVOTHYROXINE
     Dosage: 100 MG, QD
  2. ATORVASTATIN [Concomitant]
     Active Substance: ATORVASTATIN
     Dosage: 40 MG, QD
  3. ADEMPAS [Suspect]
     Active Substance: RIOCIGUAT
     Indication: PULMONARY HYPERTENSION
     Dosage: 1 MG, TID
     Dates: start: 20210408
  4. ADEMPAS [Suspect]
     Active Substance: RIOCIGUAT
     Indication: PULMONARY HYPERTENSION
     Dosage: 1.5 MG, TID
     Route: 048
     Dates: end: 20210512
  5. TORASEMID [Concomitant]
     Active Substance: TORSEMIDE
     Dosage: 5 MG, QD
  6. ADEMPAS [Suspect]
     Active Substance: RIOCIGUAT
     Indication: PULMONARY HYPERTENSION
     Dosage: 2.5 MG, TID
     Dates: start: 20210527, end: 20210610
  7. METOPROLOL. [Concomitant]
     Active Substance: METOPROLOL
     Dosage: 47.5 MG, QD
  8. TORASEMID [Concomitant]
     Active Substance: TORSEMIDE
     Dosage: 10 MG, BID 1?0?1
     Dates: start: 20210611
  9. ADEMPAS [Suspect]
     Active Substance: RIOCIGUAT
     Indication: PULMONARY HYPERTENSION
     Dosage: 2.0 MG, TID
     Route: 048
     Dates: start: 20210512, end: 20210527
  10. ELIQUIS [Concomitant]
     Active Substance: APIXABAN
     Dosage: 5 MG, QD
  11. TELMISARTAN. [Concomitant]
     Active Substance: TELMISARTAN
     Dosage: 100 MG, QD

REACTIONS (4)
  - Head injury [None]
  - Oedema peripheral [Not Recovered/Not Resolved]
  - Fall [Recovering/Resolving]
  - Dizziness [Recovering/Resolving]

NARRATIVE: CASE EVENT DATE: 20210413
